FAERS Safety Report 10258551 (Version 1)
Quarter: 2014Q2

REPORT INFORMATION
  Report Type: Spontaneous
  Country: US (occurrence: US)
  Receive Date: 20140625
  Receipt Date: 20140625
  Transmission Date: 20141212
  Serious: Yes (Hospitalization)
  Sender: FDA-Public Use
  Company Number: US-FRI-1000068348

PATIENT
  Age: 63 Year
  Sex: Male

DRUGS (1)
  1. FETZIMA [Suspect]
     Indication: DEPRESSION
     Dosage: 80 MG
     Route: 048
     Dates: start: 2014

REACTIONS (1)
  - Atrial fibrillation [Recovered/Resolved]
